FAERS Safety Report 5007810-0 (Version None)
Quarter: 2006Q2

REPORT INFORMATION
  Report Type: 
  Country: None (occurrence: None)
  Receive Date: 20060517
  Receipt Date: 20060504
  Transmission Date: 20061013
  Serious: Yes (Other)
  Sender: FDA-Public Use
  Company Number: 2006060498

PATIENT
  Age: 55 Year
  Sex: Female

DRUGS (4)
  1. LINEZOLID [Suspect]
     Indication: STREPTOCOCCAL INFECTION
     Dosage: 600 MG (600 MG, 1 IN 1 D) ORAL
     Route: 048
     Dates: start: 20060414, end: 20060421
  2. GLICLAZIDE [Concomitant]
  3. INSULIN GLARGINE [Concomitant]
  4. METFORMIN [Concomitant]

REACTIONS (3)
  - BLINDNESS [None]
  - OPTIC NEURITIS [None]
  - RETINITIS PIGMENTOSA [None]
